FAERS Safety Report 20068065 (Version 1)
Quarter: 2021Q4

REPORT INFORMATION
  Report Type: Spontaneous
  Country: US (occurrence: None)
  Receive Date: 20211113
  Receipt Date: 20211113
  Transmission Date: 20220304
  Serious: Yes (Hospitalization)
  Sender: FDA-Public Use
  Company Number: None

PATIENT
  Age: 50 Year
  Sex: Female
  Weight: 65.25 kg

DRUGS (1)
  1. REGEN-COV [Suspect]
     Active Substance: CASIRIVIMAB\IMDEVIMAB
     Indication: SARS-CoV-2 test positive
     Dosage: FREQUENCY : ONCE;?
     Route: 041
     Dates: start: 20211113, end: 20211113

REACTIONS (5)
  - Infusion related reaction [None]
  - Chest pain [None]
  - Hypoaesthesia [None]
  - Back pain [None]
  - Skin tightness [None]

NARRATIVE: CASE EVENT DATE: 20211113
